FAERS Safety Report 23767077 (Version 1)
Quarter: 2024Q2

REPORT INFORMATION
  Report Type: Spontaneous
  Country: NL (occurrence: NL)
  Receive Date: 20240422
  Receipt Date: 20240422
  Transmission Date: 20240716
  Serious: Yes (Life-Threatening, Other)
  Sender: FDA-Public Use
  Company Number: NL-LRB-00964182

PATIENT
  Age: 61 Year
  Sex: Male
  Weight: 90.6 kg

DRUGS (1)
  1. OMEPRAZOLE [Suspect]
     Active Substance: OMEPRAZOLE
     Indication: Dyspepsia
     Dosage: 20 MILLIGRAM (1 TABLET AS NEEDED)
     Route: 065
     Dates: start: 20240405, end: 20240406

REACTIONS (1)
  - Arrhythmia [Recovered/Resolved]
